FAERS Safety Report 25327265 (Version 1)
Quarter: 2025Q2

REPORT INFORMATION
  Report Type: Report from Study
  Country: DE (occurrence: DE)
  Receive Date: 20250517
  Receipt Date: 20250517
  Transmission Date: 20250716
  Serious: Yes (Other)
  Sender: AUROBINDO
  Company Number: DE-SUN PHARMACEUTICAL INDUSTRIES LTD-2025R1-505836

PATIENT
  Age: 69 Year
  Sex: Female

DRUGS (1)
  1. APIXABAN [Suspect]
     Active Substance: APIXABAN
     Indication: Atrial fibrillation
     Dosage: 5 MILLIGRAM, TWO TIMES A DAY (5 MILLIGRAM, BID)
     Route: 065

REACTIONS (1)
  - Atrial fibrillation [Unknown]
